FAERS Safety Report 10952249 (Version 1)
Quarter: 2015Q1

REPORT INFORMATION
  Report Type: Spontaneous
  Country: US (occurrence: None)
  Receive Date: 20150324
  Receipt Date: 20150324
  Transmission Date: 20150721
  Serious: Yes (Other)
  Sender: FDA-Public Use
  Company Number: None

PATIENT
  Age: 56 Year
  Sex: Female
  Weight: 72.58 kg

DRUGS (7)
  1. HUMIRA [Suspect]
     Active Substance: ADALIMUMAB
     Indication: RHEUMATOID ARTHRITIS
     Dosage: 1  GIVEN INTO/UNDER THE SKIN
     Route: 058
  2. METOPROLOL [Concomitant]
     Active Substance: METOPROLOL
  3. VITAMIN D [Concomitant]
     Active Substance: CHOLECALCIFEROL
  4. HCTZ [Concomitant]
     Active Substance: HYDROCHLOROTHIAZIDE
  5. BLACK COHASH [Concomitant]
  6. LYRICA [Concomitant]
     Active Substance: PREGABALIN
  7. LEXARO [Concomitant]

REACTIONS (2)
  - Injection site reaction [None]
  - Skin cancer [None]

NARRATIVE: CASE EVENT DATE: 20130610
